FAERS Safety Report 8181829 (Version 23)
Quarter: 2013Q3

REPORT INFORMATION
  Report Type: Spontaneous
  Country: US (occurrence: US)
  Receive Date: 20111014
  Receipt Date: 20130918
  Transmission Date: 20140515
  Serious: Yes (Hospitalization, Disabling, Other)
  Sender: FDA-Public Use
  Company Number: US-ACTELION-A-NJ2011-54936

PATIENT
  Age: 55 Year
  Sex: Male

DRUGS (12)
  1. VELETRI [Suspect]
     Indication: PORTOPULMONARY HYPERTENSION
     Dosage: 16 NG/KG, PER MIN
     Route: 041
     Dates: start: 20110920, end: 20111022
  2. VELETRI [Suspect]
     Dosage: 10 NG/KG, PER MIN
     Route: 041
     Dates: start: 20100727, end: 2011
  3. VELETRI [Suspect]
     Dosage: 14 NG/KG, PER MIN
     Route: 041
     Dates: start: 20111023
  4. VELETRI [Suspect]
     Dosage: 107 UNK, UNK
     Route: 041
  5. ASPIRIN [Concomitant]
  6. LACTULOSE [Concomitant]
  7. PERCOCET [Concomitant]
  8. SOMA [Concomitant]
  9. POTASSIUM CHLORIDE [Concomitant]
  10. OXYCODONE [Concomitant]
  11. ROXICODONE [Concomitant]
  12. ZOFRAN [Concomitant]

REACTIONS (18)
  - Renal disorder [Not Recovered/Not Resolved]
  - Haemodialysis [Not Recovered/Not Resolved]
  - Nephrolithiasis [Unknown]
  - Lithotripsy [Unknown]
  - Stent placement [Unknown]
  - Abdominal pain [Recovering/Resolving]
  - Nerve block [Recovering/Resolving]
  - Pneumonia [Recovered/Resolved]
  - Aspiration [Recovering/Resolving]
  - Back pain [Recovering/Resolving]
  - Mental status changes [Not Recovered/Not Resolved]
  - Vomiting [Recovering/Resolving]
  - Nausea [Recovering/Resolving]
  - Diarrhoea [Recovered/Resolved]
  - Dyspnoea [Not Recovered/Not Resolved]
  - Device dislocation [Unknown]
  - Constipation [Recovered/Resolved]
  - Fatigue [Recovering/Resolving]
